FAERS Safety Report 21768287 (Version 2)
Quarter: 2023Q1

REPORT INFORMATION
  Report Type: Spontaneous
  Country: US (occurrence: US)
  Receive Date: 20221222
  Receipt Date: 20230106
  Transmission Date: 20230417
  Serious: Yes (Other)
  Sender: FDA-Public Use
  Company Number: US-TEVA-2022-US-2837381

PATIENT

DRUGS (2)
  1. URSODIOL [Suspect]
     Active Substance: URSODIOL
     Indication: Prophylaxis
     Route: 065
  2. DEFIBROTIDE [Suspect]
     Active Substance: DEFIBROTIDE (BOVINE)
     Indication: Venoocclusive liver disease
     Dosage: 25 MG/KG DAILY; 25 MG/KG PER DAY IN 4 DIVIDED DOSES
     Route: 065

REACTIONS (2)
  - Pulmonary haemorrhage [Unknown]
  - Drug ineffective [Unknown]
